FAERS Safety Report 5353507-7 (Version None)
Quarter: 2007Q2

REPORT INFORMATION
  Report Type: 
  Country: None (occurrence: None)
  Receive Date: 20070612
  Receipt Date: 20070601
  Transmission Date: 20071010
  Serious: Yes (Other)
  Sender: FDA-Public Use
  Company Number: US-JNJFOC-20070601722

PATIENT
  Age: 47 Year
  Sex: Female

DRUGS (1)
  1. LEVAQUIN [Suspect]
     Indication: SINUSITIS
     Route: 065

REACTIONS (9)
  - ABNORMAL DREAMS [None]
  - AGITATION [None]
  - ARTHRALGIA [None]
  - ASTHENIA [None]
  - CONFUSIONAL STATE [None]
  - DIZZINESS [None]
  - FATIGUE [None]
  - GASTROINTESTINAL DISORDER [None]
  - INSOMNIA [None]
